FAERS Safety Report 7915943-1 (Version None)
Quarter: 2011Q4

REPORT INFORMATION
  Report Type: 
  Country: None (occurrence: None)
  Receive Date: 20111115
  Receipt Date: 20111110
  Transmission Date: 20120403
  Serious: Yes (Life-Threatening, Hospitalization)
  Sender: FDA-Public Use
  Company Number: FR-GILEAD-2011-0046313

PATIENT
  Sex: Female

DRUGS (4)
  1. ATRIPLA [Suspect]
     Indication: HIV INFECTION
     Dosage: 1 DF, UNK
     Route: 048
     Dates: start: 20090101
  2. OPTICRON [Concomitant]
     Indication: SEASONAL ALLERGY
  3. XYZAL [Concomitant]
     Indication: SEASONAL ALLERGY
     Dosage: 1 UNK, UNK
     Route: 048
  4. MENOPHYTEA [Suspect]
     Indication: WEIGHT LOSS DIET
     Dosage: UNK
     Route: 048
     Dates: start: 20090801, end: 20090901

REACTIONS (2)
  - BILIARY CIRRHOSIS PRIMARY [None]
  - CYTOLYTIC HEPATITIS [None]
